FAERS Safety Report 13710804 (Version 1)
Quarter: 2017Q3

REPORT INFORMATION
  Report Type: Spontaneous
  Country: US (occurrence: US)
  Receive Date: 20170702
  Receipt Date: 20170702
  Transmission Date: 20171127
  Serious: Yes (Other)
  Sender: FDA-Public Use
  Company Number: None

PATIENT
  Age: 39 Year
  Sex: Male
  Weight: 72.9 kg

DRUGS (3)
  1. LYSINE [Concomitant]
     Active Substance: LYSINE
  2. VALACYCLOVIR HCL 1 GRAM TABLET [Suspect]
     Active Substance: VALACYCLOVIR HYDROCHLORIDE
     Indication: ORAL HERPES
     Dosage: ?          OTHER STRENGTH:GM;QUANTITY:34 TABLET(S);?
     Route: 048
     Dates: start: 20170617, end: 20170619
  3. VALACYCLOVIR HCL 1 GRAM TABLET [Suspect]
     Active Substance: VALACYCLOVIR HYDROCHLORIDE
     Indication: HERPES ZOSTER
     Dosage: ?          OTHER STRENGTH:GM;QUANTITY:34 TABLET(S);?
     Route: 048
     Dates: start: 20170617, end: 20170619

REACTIONS (6)
  - Drug effect decreased [None]
  - Oral herpes [None]
  - Hypersensitivity [None]
  - Condition aggravated [None]
  - Rash [None]
  - Product substitution issue [None]

NARRATIVE: CASE EVENT DATE: 20170701
